FAERS Safety Report 5507889-3 (Version None)
Quarter: 2007Q4

REPORT INFORMATION
  Report Type: 
  Country: None (occurrence: None)
  Receive Date: 20071106
  Receipt Date: 20071025
  Transmission Date: 20080405
  Serious: Yes (Other)
  Sender: FDA-Public Use
  Company Number: US-WYE-H00890307

PATIENT
  Sex: Male
  Weight: 122.58 kg

DRUGS (2)
  1. EFFEXOR [Suspect]
     Indication: HEADACHE
     Dosage: VARYING DOSES
     Route: 048
     Dates: end: 20070701
  2. EFFEXOR [Suspect]
     Route: 048
     Dates: start: 20070701

REACTIONS (5)
  - CONDITION AGGRAVATED [None]
  - DYSARTHRIA [None]
  - FATIGUE [None]
  - HEADACHE [None]
  - SOMNOLENCE [None]
